FAERS Safety Report 8601599-1 (Version None)
Quarter: 2012Q3

REPORT INFORMATION
  Report Type: 
  Country: None (occurrence: None)
  Receive Date: 20120817
  Receipt Date: 20120116
  Transmission Date: 20120928
  Serious: Yes (Hospitalization)
  Sender: FDA-Public Use
  Company Number: US-BRISTOL-MYERS SQUIBB COMPANY-16293243

PATIENT
  Age: 64 Year
  Sex: Male

DRUGS (4)
  1. DEPAKOTE [Concomitant]
  2. INVEGA [Concomitant]
  3. VYTORIN [Concomitant]
  4. SPRYCEL [Suspect]
     Indication: CHRONIC MYELOID LEUKAEMIA
     Dates: start: 20111001, end: 20111206

REACTIONS (1)
  - SUBDURAL HAEMATOMA [None]
